FAERS Safety Report 5988937-3 (Version None)
Quarter: 2008Q4

REPORT INFORMATION
  Report Type: 
  Country: None (occurrence: None)
  Receive Date: 20081208
  Receipt Date: 20081208
  Transmission Date: 20090506
  Serious: No
  Sender: FDA-Public Use
  Company Number: None

PATIENT
  Age: 64 Year
  Sex: Female
  Weight: 115.6672 kg

DRUGS (1)
  1. SEROQUEL [Suspect]

REACTIONS (5)
  - FACIAL SPASM [None]
  - PAIN [None]
  - PANCREATITIS [None]
  - TARDIVE DYSKINESIA [None]
  - WEIGHT INCREASED [None]
